FAERS Safety Report 9788638 (Version 2)
Quarter: 2013Q4

REPORT INFORMATION
  Report Type: Spontaneous
  Country: DE (occurrence: DE)
  Receive Date: 20131230
  Receipt Date: 20131230
  Transmission Date: 20140711
  Serious: Yes (Hospitalization)
  Sender: FDA-Public Use
  Company Number: DE-BAYER-2013-145387

PATIENT
  Age: 56 Year
  Sex: Male
  Weight: 114 kg

DRUGS (3)
  1. STIVARGA [Suspect]
     Indication: COLORECTAL CANCER
     Dosage: UNK
     Route: 048
     Dates: start: 20131012, end: 20131014
  2. LYRICA [Concomitant]
     Indication: PAIN
  3. XARELTO [Concomitant]
     Indication: THROMBOSIS
     Route: 048

REACTIONS (7)
  - Hypertensive crisis [None]
  - Pain [None]
  - Tremor [None]
  - Restlessness [None]
  - Abdominal pain [None]
  - Headache [None]
  - Renal failure acute [None]
